FAERS Safety Report 19879636 (Version 1)
Quarter: 2021Q3

REPORT INFORMATION
  Report Type: Spontaneous
  Country: KR (occurrence: KR)
  Receive Date: 20210924
  Receipt Date: 20210924
  Transmission Date: 20211014
  Serious: Yes (Other)
  Sender: FDA-Public Use
  Company Number: KR-PFIZER INC-202101209589

PATIENT
  Sex: Male

DRUGS (2)
  1. CARDURA XL [Suspect]
     Active Substance: DOXAZOSIN MESYLATE
     Indication: PROSTATIC DISORDER
  2. CARDURA XL [Suspect]
     Active Substance: DOXAZOSIN MESYLATE
     Indication: BLOOD PRESSURE INCREASED
     Dosage: UNK
     Route: 048
     Dates: start: 2011

REACTIONS (4)
  - Myalgia [Unknown]
  - Diabetes mellitus [Unknown]
  - Headache [Unknown]
  - Feeling hot [Unknown]

NARRATIVE: CASE EVENT DATE: 20210905
